FAERS Safety Report 14552748 (Version 1)
Quarter: 2018Q1

REPORT INFORMATION
  Report Type: Report from Study
  Country: JP (occurrence: JP)
  Receive Date: 20180220
  Receipt Date: 20180220
  Transmission Date: 20180509
  Serious: Yes (Hospitalization)
  Sender: FDA-Public Use
  Company Number: JP-ACTELION-A-CH2018-167518

PATIENT
  Age: 45 Year
  Sex: Male

DRUGS (13)
  1. OXYGEN. [Concomitant]
     Active Substance: OXYGEN
  2. WARFARIN [Suspect]
     Active Substance: WARFARIN
     Indication: CARDIAC FAILURE
     Dosage: 4.5 MG, QD
     Route: 048
     Dates: start: 20070427, end: 20170908
  3. MAGNESIUM OXIDE. [Concomitant]
     Active Substance: MAGNESIUM OXIDE
  4. ADCIRCA [Concomitant]
     Active Substance: TADALAFIL
  5. DEPAKENE [Concomitant]
     Active Substance: VALPROIC ACID
  6. OPSUMIT [Suspect]
     Active Substance: MACITENTAN
     Indication: PULMONARY ARTERIAL HYPERTENSION
     Dosage: 10 MG, OD
     Route: 048
     Dates: start: 20160902
  7. ENALAPRIL MALEATE. [Concomitant]
     Active Substance: ENALAPRIL MALEATE
  8. TREPROST [Concomitant]
     Active Substance: TREPROSTINIL
  9. FUROSEMIDE. [Concomitant]
     Active Substance: FUROSEMIDE
  10. E KEPPRA [Concomitant]
     Active Substance: LEVETIRACETAM
  11. SAMSCA [Concomitant]
     Active Substance: TOLVAPTAN
  12. TRAMCET [Concomitant]
     Active Substance: ACETAMINOPHEN\TRAMADOL
  13. AMLODIPINE [Concomitant]
     Active Substance: AMLODIPINE BESYLATE

REACTIONS (8)
  - Haematoma evacuation [Unknown]
  - Neck pain [Recovered/Resolved]
  - Paralysis [Recovered/Resolved]
  - Bladder disorder [Recovered/Resolved]
  - Spinal epidural haematoma [Recovered/Resolved]
  - Musculoskeletal pain [Recovered/Resolved]
  - Cardiac failure [Recovered/Resolved]
  - Respiratory failure [Recovered/Resolved]

NARRATIVE: CASE EVENT DATE: 20170908
